FAERS Safety Report 4546569-8 (Version None)
Quarter: 2005Q1

REPORT INFORMATION
  Report Type: 
  Country: None (occurrence: None)
  Receive Date: 20050103
  Receipt Date: 20041222
  Transmission Date: 20050727
  Serious: Yes (Hospitalization, Other)
  Sender: FDA-Public Use
  Company Number: 2004117646

PATIENT
  Age: 47 Year
  Sex: Female

DRUGS (1)
  1. SYNAREL SPRAY (NAFARELIN ACETATE) [Suspect]
     Indication: ENDOMETRIOSIS
     Dosage: 400 MCG, NASAL
     Route: 045
     Dates: start: 19921201, end: 19930125

REACTIONS (7)
  - ARTHRALGIA [None]
  - ARTHRITIS [None]
  - CHONDROPATHY [None]
  - MENOPAUSE [None]
  - MYALGIA [None]
  - OSTEOPOROSIS [None]
  - OVARIAN CYST RUPTURED [None]
